FAERS Safety Report 9460005 (Version 1)
Quarter: 2013Q3

REPORT INFORMATION
  Report Type: Spontaneous
  Country: US (occurrence: None)
  Receive Date: 20130813
  Receipt Date: 20130813
  Transmission Date: 20140515
  Serious: Yes (Life-Threatening, Other)
  Sender: FDA-Public Use
  Company Number: None

PATIENT
  Age: 69 Year
  Sex: Female
  Weight: 86.64 kg

DRUGS (9)
  1. CHLORHEXIDINE GLUCONATE [Suspect]
     Indication: GINGIVAL DISORDER
     Dosage: 1/2 OUNCE 3 TIMES A DAY LEAVE IN FOR 60 SECOND
     Route: 048
     Dates: start: 20130708, end: 20130719
  2. PULMICORT [Concomitant]
  3. FLUTICASONE [Concomitant]
  4. ZANAX [Concomitant]
  5. VIT C [Concomitant]
  6. VIT D [Concomitant]
  7. CALCIUM [Concomitant]
  8. COD LIVER OIL [Concomitant]
  9. FOLIC ACID [Concomitant]

REACTIONS (7)
  - Dyspnoea [None]
  - Wheezing [None]
  - Pain in extremity [None]
  - Arthralgia [None]
  - Chest pain [None]
  - Oral pruritus [None]
  - Asthma [None]
